FAERS Safety Report 6490833-2 (Version None)
Quarter: 2009Q4

REPORT INFORMATION
  Report Type: 
  Country: None (occurrence: None)
  Receive Date: 20091124
  Receipt Date: 20090601
  Transmission Date: 20100525
  Serious: Yes (Hospitalization)
  Sender: FDA-Public Use
  Company Number: 280832

PATIENT
  Age: 81 Year
  Sex: Female
  Weight: 77.1 kg

DRUGS (1)
  1. HERCEPTIN [Suspect]
     Indication: BREAST CANCER
     Dosage: 624 MG, SINGLE, INTRACATHETER
     Dates: start: 20090313, end: 20090313

REACTIONS (3)
  - CHILLS [None]
  - DYSPNOEA [None]
  - WHEEZING [None]
